FAERS Safety Report 6494603-0 (Version None)
Quarter: 2009Q4

REPORT INFORMATION
  Report Type: 
  Country: None (occurrence: None)
  Receive Date: 20091214
  Receipt Date: 20090401
  Transmission Date: 20100525
  Serious: No
  Sender: FDA-Public Use
  Company Number: US-BRISTOL-MYERS SQUIBB COMPANY-14535322

PATIENT
  Age: 12 Year
  Sex: Female

DRUGS (3)
  1. ABILIFY [Suspect]
     Indication: DEPRESSION
     Dosage: INITIATED AT 2MG EVERY DAY, TITRATING UPTO 10MG AT BED TIME.  DOSE INCREASED TO 10MG QD
     Route: 048
     Dates: start: 20090211
  2. LEXAPRO [Suspect]
     Indication: DEPRESSION
  3. AMOXICILLIN [Concomitant]
     Indication: SINUSITIS
     Dates: start: 20090319

REACTIONS (3)
  - COUGH [None]
  - DIZZINESS [None]
  - PALLOR [None]
